FAERS Safety Report 7057483-0 (Version None)
Quarter: 2010Q4

REPORT INFORMATION
  Report Type: 
  Country: None (occurrence: None)
  Receive Date: 20101022
  Receipt Date: 20101007
  Transmission Date: 20110411
  Serious: Yes (Hospitalization)
  Sender: FDA-Public Use
  Company Number: DE-ROCHE-725404

PATIENT
  Sex: Female
  Weight: 55 kg

DRUGS (16)
  1. TOCILIZUMAB [Suspect]
     Indication: RHEUMATOID ARTHRITIS
     Dosage: DOSE LEVEL: 8 MG/KG
     Route: 065
     Dates: start: 20100531, end: 20100531
  2. TOCILIZUMAB [Suspect]
     Route: 065
     Dates: start: 20100706, end: 20100706
  3. TOCILIZUMAB [Suspect]
     Route: 065
     Dates: start: 20100803, end: 20100803
  4. BLINDED OCRELIZUMAB [Suspect]
     Indication: RHEUMATOID ARTHRITIS
     Dosage: FREQUENCY: DAY 1+15, LAST DOSE PRIOR SAE: 19 JANUARY 2010, FORM: FLUID
     Route: 042
     Dates: start: 20080915
  5. MTX [Suspect]
     Indication: RHEUMATOID ARTHRITIS
     Route: 065
     Dates: start: 20080601
  6. MTX [Suspect]
     Route: 065
     Dates: start: 19990501, end: 20100901
  7. VOLTAREN [Suspect]
     Indication: RHEUMATOID ARTHRITIS
     Dosage: VOLTAREN RESINAT
     Route: 065
     Dates: start: 20100608, end: 20100901
  8. SANDOCAL [Concomitant]
     Dates: start: 20060101
  9. FOLIC ACID [Concomitant]
     Dates: start: 19990501
  10. DIGIMERCK [Concomitant]
     Dates: start: 20080101
  11. HCT [Concomitant]
     Dates: start: 20080101
  12. ASPIRIN [Concomitant]
     Dates: start: 20081202
  13. OMEPRAZOLE [Concomitant]
     Dates: start: 20090801
  14. APROVEL [Concomitant]
     Dates: start: 20100117
  15. VALORON [Concomitant]
     Dates: start: 20100601, end: 20100830
  16. CONCOR [Concomitant]
     Dates: start: 20080601

REACTIONS (1)
  - HEPATITIS CHOLESTATIC [None]
